FAERS Safety Report 5681437-X (Version None)
Quarter: 2008Q1

REPORT INFORMATION
  Report Type: 
  Country: None (occurrence: None)
  Receive Date: 20080326
  Receipt Date: 20070203
  Transmission Date: 20080703
  Serious: No
  Sender: FDA-Public Use
  Company Number: US-BAYER-US-2007-004206

PATIENT
  Sex: Female

DRUGS (2)
  1. MIRENA [Suspect]
     Indication: CONTRACEPTION
     Route: 015
  2. CELEXA [Concomitant]
     Indication: DEPRESSION
     Dosage: UNIT DOSE: 20 MG
     Route: 048
     Dates: start: 20070129

REACTIONS (4)
  - ABDOMINAL PAIN LOWER [None]
  - IUCD COMPLICATION [None]
  - PELVIC PAIN [None]
  - VAGINAL DISCHARGE [None]
